FAERS Safety Report 9236396 (Version 1)
Quarter: 2013Q2

REPORT INFORMATION
  Report Type: Spontaneous
  Country: FR (occurrence: FR)
  Receive Date: 20130417
  Receipt Date: 20130417
  Transmission Date: 20140414
  Serious: Yes (Life-Threatening)
  Sender: FDA-Public Use
  Company Number: FR-SANOFI-AVENTIS-2013SA037460

PATIENT
  Age: 51 Year
  Sex: Female
  Weight: 89 kg

DRUGS (9)
  1. RIFADINE [Suspect]
     Indication: TUBERCULOSIS
     Route: 048
     Dates: start: 20130110, end: 20130318
  2. ISENTRESS [Suspect]
     Indication: HIV INFECTION
     Route: 048
     Dates: start: 20130207, end: 20130317
  3. ABACAVIR/LAMIVUDINE [Suspect]
     Indication: HIV INFECTION
     Route: 048
     Dates: start: 20130207, end: 20130317
  4. RIMIFON [Suspect]
     Indication: TUBERCULOSIS
     Route: 048
     Dates: start: 20130110, end: 20130318
  5. DEXAMBUTOL [Suspect]
     Indication: TUBERCULOSIS
     Route: 048
     Dates: start: 20130110, end: 20130318
  6. MALOCIDE [Concomitant]
     Route: 048
     Dates: start: 20130110, end: 20130117
  7. DALACIN [Concomitant]
     Route: 048
     Dates: start: 20130110, end: 20130130
  8. ROCEPHINE [Concomitant]
     Indication: URINARY TRACT INFECTION
     Route: 051
     Dates: start: 20130308, end: 20130311
  9. INEXIUM [Concomitant]
     Dates: end: 20130322

REACTIONS (8)
  - Drug reaction with eosinophilia and systemic symptoms [Not Recovered/Not Resolved]
  - Rash [Not Recovered/Not Resolved]
  - Lymphadenopathy [Not Recovered/Not Resolved]
  - Pyrexia [Not Recovered/Not Resolved]
  - Hepatocellular injury [Not Recovered/Not Resolved]
  - Face oedema [Not Recovered/Not Resolved]
  - Eosinophilia [Not Recovered/Not Resolved]
  - Agranulocytosis [Recovering/Resolving]
